FAERS Safety Report 9082248 (Version 1)
Quarter: 2013Q1

REPORT INFORMATION
  Report Type: Report from Study
  Country: PR (occurrence: PR)
  Receive Date: 20130130
  Receipt Date: 20130130
  Transmission Date: 20140127
  Serious: No
  Sender: FDA-Public Use
  Company Number: PR-ABBOTT-12P-131-0889756-00

PATIENT
  Sex: Female
  Weight: 67.19 kg

DRUGS (3)
  1. HUMIRA 40 MG/0.8 ML PEN [Suspect]
     Indication: PSORIASIS
     Route: 058
     Dates: end: 201112
  2. HUMIRA 40 MG/0.8 ML PEN [Suspect]
     Route: 058
     Dates: start: 201201, end: 201208
  3. PLAQUENIL [Concomitant]
     Indication: PRODUCT USED FOR UNKNOWN INDICATION
     Route: 048

REACTIONS (5)
  - Bronchitis [Recovered/Resolved]
  - Urinary tract infection [Recovered/Resolved]
  - Vaginal infection [Recovered/Resolved]
  - Urinary tract infection [Not Recovered/Not Resolved]
  - Vaginal infection [Not Recovered/Not Resolved]
